FAERS Safety Report 18287299 (Version 1)
Quarter: 2020Q3

REPORT INFORMATION
  Report Type: Spontaneous
  Country: US (occurrence: US)
  Receive Date: 20200921
  Receipt Date: 20200921
  Transmission Date: 20201103
  Serious: Yes (Other)
  Sender: FDA-Public Use
  Company Number: US-SA-2020SA250892

PATIENT

DRUGS (5)
  1. NAPROXEN. [Concomitant]
     Active Substance: NAPROXEN
  2. MYRBETRIQ [Concomitant]
     Active Substance: MIRABEGRON
  3. AUBAGIO [Suspect]
     Active Substance: TERIFLUNOMIDE
     Indication: PRODUCT USED FOR UNKNOWN INDICATION
     Dosage: 14 MG, QD
     Route: 048
     Dates: start: 20180421
  4. BACLOFEN. [Concomitant]
     Active Substance: BACLOFEN
  5. AMITRIPTYLIN [Concomitant]
     Active Substance: AMITRIPTYLINE

REACTIONS (1)
  - Multiple sclerosis [Not Recovered/Not Resolved]
